FAERS Safety Report 17740799 (Version 1)
Quarter: 2020Q2

REPORT INFORMATION
  Report Type: Spontaneous
  Country: US (occurrence: US)
  Receive Date: 20200504
  Receipt Date: 20200504
  Transmission Date: 20200714
  Serious: Yes (Death)
  Sender: FDA-Public Use
  Company Number: None

PATIENT
  Age: 89 Year
  Sex: Male

DRUGS (4)
  1. CAPECITABINE 500MG [Concomitant]
     Active Substance: CAPECITABINE
     Dates: start: 20181018, end: 20200312
  2. ENTECAVIR 0.5MG [Suspect]
     Active Substance: ENTECAVIR
     Dates: start: 20181018, end: 20200312
  3. ENTECAVIR. [Concomitant]
     Active Substance: ENTECAVIR
  4. CAPECITABINE. [Suspect]
     Active Substance: CAPECITABINE

REACTIONS (1)
  - Death [None]
